FAERS Safety Report 5166541-7 (Version None)
Quarter: 2006Q4

REPORT INFORMATION
  Report Type: 
  Country: None (occurrence: None)
  Receive Date: 20061126
  Receipt Date: 20061113
  Transmission Date: 20070319
  Serious: Yes (Hospitalization)
  Sender: FDA-Public Use
  Company Number: DSA_29019_2006

PATIENT
  Sex: Male

DRUGS (2)
  1. TAVOR   /00273201/ [Suspect]
     Dosage: 1 MG ONCE; PO
     Route: 048
     Dates: start: 20061111, end: 20061111
  2. LEPONEX [Suspect]
     Dosage: 100 MG ONCE; PO
     Route: 048
     Dates: start: 20061111, end: 20061111

REACTIONS (2)
  - SOMNOLENCE [None]
  - WRONG DRUG ADMINISTERED [None]
